FAERS Safety Report 5622201-7 (Version None)
Quarter: 2008Q1

REPORT INFORMATION
  Report Type: 
  Country: None (occurrence: None)
  Receive Date: 20080211
  Receipt Date: 20080131
  Transmission Date: 20080703
  Serious: Yes (Hospitalization)
  Sender: FDA-Public Use
  Company Number: BE-ASTRAZENECA-2008AC00272

PATIENT
  Sex: Male

DRUGS (5)
  1. CRESTOR [Suspect]
     Route: 048
  2. DAFLON [Concomitant]
  3. ZANTAC [Concomitant]
  4. DUOVENT PUFF [Concomitant]
  5. BENERVA [Concomitant]

REACTIONS (1)
  - INTERSTITIAL LUNG DISEASE [None]
